FAERS Safety Report 6019697-8 (Version None)
Quarter: 2008Q4

REPORT INFORMATION
  Report Type: 
  Country: None (occurrence: None)
  Receive Date: 20081224
  Receipt Date: 20081215
  Transmission Date: 20090506
  Serious: Yes (Hospitalization)
  Sender: FDA-Public Use
  Company Number: IT-WATSON-2008-07351

PATIENT
  Age: 48 Year
  Sex: Female

DRUGS (1)
  1. FERRLECIT (FERLIXIT) WATSON LABORATORIES [Suspect]
     Indication: IRON DEFICIENCY ANAEMIA
     Dosage: 1 U, SINGLE
     Route: 042
     Dates: start: 20081201, end: 20081201

REACTIONS (2)
  - INCONTINENCE [None]
  - SYNCOPE [None]
